FAERS Safety Report 7581804-3 (Version None)
Quarter: 2011Q2

REPORT INFORMATION
  Report Type: 
  Country: None (occurrence: None)
  Receive Date: 20110629
  Receipt Date: 20110614
  Transmission Date: 20111010
  Serious: Yes (Hospitalization)
  Sender: FDA-Public Use
  Company Number: NL-GENENTECH-279178

PATIENT
  Sex: Female
  Weight: 73 kg

DRUGS (14)
  1. PLACEBO [Suspect]
     Indication: RENAL TRANSPLANT
     Dosage: UNK
     Route: 042
     Dates: start: 20081113
  2. BLINDED RITUXIMAB [Suspect]
     Indication: RENAL TRANSPLANT
     Dosage: UNK
     Route: 042
     Dates: start: 20081113
  3. FERROUS FUMARATE [Concomitant]
     Indication: PRODUCT USED FOR UNKNOWN INDICATION
     Dosage: UNK
     Dates: start: 20090220
  4. NYSTATIN [Concomitant]
     Indication: PRODUCT USED FOR UNKNOWN INDICATION
     Dosage: UNK
     Dates: start: 20090220
  5. GLICLAZIDE [Concomitant]
     Indication: PRODUCT USED FOR UNKNOWN INDICATION
     Dosage: UNK
     Dates: start: 20090122
  6. SIROLIMUS [Suspect]
     Indication: RENAL TRANSPLANT
     Dosage: 1.5 MG, UNK
     Route: 065
     Dates: start: 20090206
  7. ALFACALCIDOL [Concomitant]
     Indication: PRODUCT USED FOR UNKNOWN INDICATION
     Dosage: UNK
     Dates: start: 20081120
  8. MYCOPHENOLATE MEFETIL [Suspect]
     Indication: RENAL TRANSPLANT
     Dosage: 1500 MG, UNK
     Route: 065
     Dates: start: 20081114
  9. PREDNISONE [Suspect]
     Indication: RENAL TRANSPLANT
     Dosage: 20 MG, UNK
     Route: 065
     Dates: start: 20081113
  10. METOPROLOL TARTRATE [Concomitant]
     Indication: PRODUCT USED FOR UNKNOWN INDICATION
     Dosage: UNK
     Dates: start: 20080610
  11. FAMOTIDINE [Concomitant]
     Indication: PRODUCT USED FOR UNKNOWN INDICATION
     Dosage: UNK
     Dates: start: 20090212
  12. COTRIM [Concomitant]
     Indication: PRODUCT USED FOR UNKNOWN INDICATION
     Dosage: UNK
     Dates: start: 20081114, end: 20090212
  13. CALCIUM CARBONATE [Concomitant]
     Indication: PRODUCT USED FOR UNKNOWN INDICATION
     Dosage: UNK
     Dates: start: 20081120
  14. PANTOPRAZOLE [Concomitant]
     Indication: PRODUCT USED FOR UNKNOWN INDICATION
     Dosage: UNK
     Dates: start: 20081218, end: 20090212

REACTIONS (4)
  - UROSEPSIS [None]
  - RENAL IMPAIRMENT [None]
  - URINARY TRACT INFECTION [None]
  - BLOOD CREATININE INCREASED [None]
